FAERS Safety Report 25168714 (Version 1)
Quarter: 2025Q2

REPORT INFORMATION
  Report Type: Spontaneous
  Country: US (occurrence: US)
  Receive Date: 20250407
  Receipt Date: 20250407
  Transmission Date: 20250716
  Serious: No
  Sender: INTRA-CELLULAR THERAPIES
  Company Number: US-INTRA-CELLULAR THERAPIES, INC.-2024ICT02076

PATIENT
  Age: 31 Year
  Sex: Female

DRUGS (2)
  1. CAPLYTA [Suspect]
     Active Substance: LUMATEPERONE
     Indication: Bipolar disorder
  2. CAPLYTA [Suspect]
     Active Substance: LUMATEPERONE
     Indication: Obsessive-compulsive disorder

REACTIONS (8)
  - Migraine [Unknown]
  - Eye pain [Unknown]
  - Visual impairment [Unknown]
  - Burning sensation [Unknown]
  - Dizziness [Unknown]
  - Abdominal pain upper [Unknown]
  - Fall [Unknown]
  - Sedation [Unknown]
